FAERS Safety Report 4629066-0 (Version None)
Quarter: 2005Q2

REPORT INFORMATION
  Report Type: 
  Country: None (occurrence: None)
  Receive Date: 20050404
  Receipt Date: 20050404
  Transmission Date: 20051028
  Serious: Yes (Life-Threatening, Hospitalization, Disabling)
  Sender: FDA-Public Use
  Company Number: None

PATIENT
  Age: 71 Year
  Sex: Female
  Weight: 63.5036 kg

DRUGS (1)
  1. VIOXX [Suspect]
     Indication: ARTHRITIS
     Dosage: 1 X DAILY

REACTIONS (1)
  - CEREBROVASCULAR ACCIDENT [None]
